FAERS Safety Report 8866222 (Version 2)
Quarter: 2012Q4

REPORT INFORMATION
  Report Type: 
  Country: JP (occurrence: JP)
  Receive Date: 20121025
  Receipt Date: 20121102
  Transmission Date: 20130627
  Serious: Yes (Other)
  Sender: FDA-Public Use
  Company Number: JP-PFIZER INC-2012265545

PATIENT
  Age: 79 Year
  Sex: Male

DRUGS (3)
  1. LYRICA [Suspect]
     Dosage: 150 mg, daily
     Route: 048
     Dates: start: 201104
  2. LYRICA [Suspect]
     Dosage: 50 mg, daily
     Route: 048
     Dates: start: 201209
  3. TRAMCET [Suspect]
     Dosage: UNK

REACTIONS (5)
  - Dementia Alzheimer^s type [Unknown]
  - Orthostatic hypotension [Unknown]
  - Amnesia [Unknown]
  - Creatinine renal clearance decreased [Unknown]
  - Dizziness [Unknown]
